FAERS Safety Report 5047978-3 (Version None)
Quarter: 2006Q2

REPORT INFORMATION
  Report Type: 
  Country: None (occurrence: None)
  Receive Date: 20060601
  Receipt Date: 20060323
  Transmission Date: 20061013
  Serious: No
  Sender: FDA-Public Use
  Company Number: 2006PV010824

PATIENT
  Age: 57 Year
  Sex: Female
  Weight: 99.7913 kg

DRUGS (7)
  1. BYETTA [Suspect]
     Indication: DIABETES MELLITUS NON-INSULIN-DEPENDENT
     Dosage: SEE IMAGE
     Route: 058
     Dates: start: 20051215, end: 20051201
  2. BYETTA [Suspect]
     Indication: DIABETES MELLITUS NON-INSULIN-DEPENDENT
     Dosage: SEE IMAGE
     Route: 058
     Dates: start: 20051201, end: 20060101
  3. BYETTA [Suspect]
     Indication: DIABETES MELLITUS NON-INSULIN-DEPENDENT
     Dosage: SEE IMAGE
     Route: 058
     Dates: start: 20060101
  4. HUMALOG [Concomitant]
  5. LANTUS [Concomitant]
  6. ACTOS [Concomitant]
  7. METAMUCIL-2 [Concomitant]

REACTIONS (4)
  - DECREASED APPETITE [None]
  - DRUG EFFECT DECREASED [None]
  - NAUSEA [None]
  - WEIGHT DECREASED [None]
